FAERS Safety Report 25242410 (Version 1)
Quarter: 2025Q2

REPORT INFORMATION
  Report Type: Spontaneous
  Country: US (occurrence: US)
  Receive Date: 20250427
  Receipt Date: 20250427
  Transmission Date: 20250716
  Serious: No
  Sender: INNOGENIX, LLC
  Company Number: US-Innogenix, LLC-2175655

PATIENT
  Sex: Female

DRUGS (2)
  1. LABETALOL HYDROCHLORIDE [Suspect]
     Active Substance: LABETALOL HYDROCHLORIDE
     Indication: Blood pressure measurement
  2. METFORMIN [Suspect]
     Active Substance: METFORMIN HYDROCHLORIDE

REACTIONS (2)
  - Drug screen false positive [Unknown]
  - Exposure during pregnancy [Unknown]
